FAERS Safety Report 7600425-7 (Version None)
Quarter: 2011Q3

REPORT INFORMATION
  Report Type: 
  Country: None (occurrence: None)
  Receive Date: 20110706
  Receipt Date: 20110706
  Transmission Date: 20111222
  Serious: Yes (Hospitalization)
  Sender: FDA-Public Use
  Company Number: None

PATIENT
  Age: 56 Year
  Sex: Male
  Weight: 94.1214 kg

DRUGS (5)
  1. CISPLATIN [Suspect]
  2. METHOTREXATE [Suspect]
     Indication: CHEMOTHERAPY
     Dosage: EVERY 2 WEEKS
     Dates: start: 20110112, end: 20110210
  3. NEULASTA [Suspect]
  4. VINBLASTINE SULFATE [Suspect]
     Indication: BLADDER CANCER
  5. DOXORUBICIN HCL [Suspect]

REACTIONS (1)
  - PULMONARY EMBOLISM [None]
